FAERS Safety Report 6167200-4 (Version None)
Quarter: 2009Q2

REPORT INFORMATION
  Report Type: 
  Country: None (occurrence: None)
  Receive Date: 20090423
  Receipt Date: 20090410
  Transmission Date: 20091009
  Serious: Yes (Death)
  Sender: FDA-Public Use
  Company Number: 20090121

PATIENT
  Age: 75 Year
  Sex: Male

DRUGS (9)
  1. CYANOCOBALAMIN [Suspect]
     Indication: DRUG USE FOR UNKNOWN INDICATION
     Dosage: 1000 UG/ML;
  2. ALBUTEROL [Concomitant]
  3. AZITHROMYCIN [Concomitant]
  4. EPOETIN [Concomitant]
  5. SIMVASTATIN [Concomitant]
  6. WARFARIN [Concomitant]
  7. DIGOXIN [Concomitant]
  8. FUROSEMIDE [Concomitant]
  9. POTASSIUM CHLORIDE [Concomitant]

REACTIONS (1)
  - SEPSIS [None]
